FAERS Safety Report 4945953-8 (Version None)
Quarter: 2006Q1

REPORT INFORMATION
  Report Type: 
  Country: None (occurrence: None)
  Receive Date: 20060127
  Receipt Date: 20051216
  Transmission Date: 20060701
  Serious: No
  Sender: FDA-Public Use
  Company Number: CLOF-10177

PATIENT
  Age: 21 Year

DRUGS (6)
  1. CLOFARABINE [Suspect]
     Indication: ACUTE MYELOID LEUKAEMIA
     Dosage: 30 MG/M2 QD X 5 IV
     Route: 042
     Dates: start: 20050801
  2. CLOFARABINE [Suspect]
     Indication: CHLOROMA
     Dosage: 30 MG/M2 QD X 5 IV
     Route: 042
     Dates: start: 20050801
  3. CLOFARABINE [Suspect]
     Indication: MENINGEAL DISORDER
     Dosage: 30 MG/M2 QD X 5 IV
     Route: 042
     Dates: start: 20050801
  4. CYTARABINE [Suspect]
     Indication: ACUTE MYELOID LEUKAEMIA
  5. CYTARABINE [Suspect]
     Indication: CHLOROMA
  6. CYTARABINE [Suspect]
     Indication: MENINGEAL DISORDER

REACTIONS (2)
  - ASPARTATE AMINOTRANSFERASE INCREASED [None]
  - BLOOD BILIRUBIN INCREASED [None]
